FAERS Safety Report 7205036-3 (Version None)
Quarter: 2010Q4

REPORT INFORMATION
  Report Type: 
  Country: None (occurrence: None)
  Receive Date: 20101230
  Receipt Date: 20101221
  Transmission Date: 20110411
  Serious: Yes (Death, Hospitalization)
  Sender: FDA-Public Use
  Company Number: PHHO2010KR18666

PATIENT
  Sex: Female
  Weight: 59 kg

DRUGS (2)
  1. AFINITOR [Suspect]
     Indication: THYROID CANCER
     Dosage: 10 MG, QD
     Route: 048
     Dates: start: 20101021, end: 20101207
  2. CHEMOTHERAPEUTICS NOS [Concomitant]

REACTIONS (15)
  - ASPIRATION [None]
  - ASTHENIA [None]
  - BRAIN NATRIURETIC PEPTIDE INCREASED [None]
  - CARDIAC ENZYMES INCREASED [None]
  - COUGH [None]
  - DEHYDRATION [None]
  - DYSPNOEA [None]
  - HYPOPHAGIA [None]
  - HYPOXIA [None]
  - OEDEMA [None]
  - OXYGEN SATURATION DECREASED [None]
  - PULMONARY OEDEMA [None]
  - RALES [None]
  - RENAL FAILURE ACUTE [None]
  - URINE OUTPUT DECREASED [None]
